FAERS Safety Report 20953218 (Version 1)
Quarter: 2022Q2

REPORT INFORMATION
  Report Type: Spontaneous
  Country: JO (occurrence: JO)
  Receive Date: 20220613
  Receipt Date: 20220613
  Transmission Date: 20220721
  Serious: Yes (Life-Threatening)
  Sender: FDA-Public Use
  Company Number: JO-NOVARTISPH-NVSC2022JO134877

PATIENT

DRUGS (1)
  1. DOCETAXEL [Suspect]
     Active Substance: DOCETAXEL
     Indication: Chemotherapy
     Dosage: UNK
     Route: 065

REACTIONS (4)
  - Administration site extravasation [Unknown]
  - Limb injury [Unknown]
  - Muscle necrosis [Unknown]
  - Necrotising fasciitis [Unknown]
